FAERS Safety Report 19901253 (Version 1)
Quarter: 2021Q3

REPORT INFORMATION
  Report Type: Spontaneous
  Country: US (occurrence: US)
  Receive Date: 20210930
  Receipt Date: 20210930
  Transmission Date: 20211014
  Serious: Yes (Life-Threatening, Other)
  Sender: FDA-Public Use
  Company Number: None

PATIENT
  Age: 38 Year
  Sex: Female
  Weight: 60.75 kg

DRUGS (12)
  1. POTASSIUM CITRATE. [Concomitant]
     Active Substance: POTASSIUM CITRATE
  2. TRUXIMA [Suspect]
     Active Substance: RITUXIMAB-ABBS
     Indication: RHEUMATOID ARTHRITIS
     Dates: start: 20210930, end: 20210930
  3. ALBUTEROL. [Concomitant]
     Active Substance: ALBUTEROL
  4. MAGNESIUM CITRATE. [Concomitant]
     Active Substance: MAGNESIUM CITRATE
  5. MELOXICAM. [Concomitant]
     Active Substance: MELOXICAM
  6. TRUXIMA [Suspect]
     Active Substance: RITUXIMAB-ABBS
     Indication: MULTIPLE SCLEROSIS
     Dates: start: 20210930, end: 20210930
  7. CETIRIZINE [Concomitant]
     Active Substance: CETIRIZINE HYDROCHLORIDE
  8. PREDNISONE. [Concomitant]
     Active Substance: PREDNISONE
  9. AZELASTINE. [Concomitant]
     Active Substance: AZELASTINE HYDROCHLORIDE
  10. PROBIOTIC [Concomitant]
     Active Substance: PROBIOTICS NOS
  11. FLONASE [Concomitant]
     Active Substance: FLUTICASONE PROPIONATE
  12. ARMOUR THYROID [Concomitant]
     Active Substance: THYROID, PORCINE

REACTIONS (5)
  - Dyspnoea [None]
  - Rash [None]
  - Throat tightness [None]
  - Chest discomfort [None]
  - Pain [None]

NARRATIVE: CASE EVENT DATE: 20210930
